FAERS Safety Report 9846789 (Version 1)
Quarter: 2014Q1

REPORT INFORMATION
  Report Type: Spontaneous
  Country: GB (occurrence: GB)
  Receive Date: 20140127
  Receipt Date: 20140127
  Transmission Date: 20141002
  Serious: Yes (Disabling)
  Sender: FDA-Public Use
  Company Number: GB-009507513-1401GBR010478

PATIENT
  Age: 38 Year
  Sex: Male

DRUGS (1)
  1. ZISPIN SOLTAB [Suspect]
     Dosage: 45 MG, UNK
     Route: 048

REACTIONS (1)
  - Faecal incontinence [Not Recovered/Not Resolved]
